FAERS Safety Report 8954668 (Version 1)
Quarter: 2012Q4

REPORT INFORMATION
  Report Type: 
  Country: US (occurrence: US)
  Receive Date: 20121207
  Receipt Date: 20121207
  Transmission Date: 20130627
  Serious: No
  Sender: FDA-Public Use
  Company Number: US-GLAXOSMITHKLINE-A0881879A

PATIENT
  Age: 63 Year
  Sex: Female
  Weight: 50.9 kg

DRUGS (1)
  1. AVANDAMET [Suspect]
     Indication: DIABETES MELLITUS
     Route: 065
     Dates: start: 2003, end: 2005

REACTIONS (3)
  - Pain [Not Recovered/Not Resolved]
  - Cardiac disorder [Unknown]
  - Chest pain [Unknown]
